FAERS Safety Report 6979610-3 (Version None)
Quarter: 2010Q3

REPORT INFORMATION
  Report Type: 
  Country: None (occurrence: None)
  Receive Date: 20100910
  Receipt Date: 20100910
  Transmission Date: 20110219
  Serious: Yes (Hospitalization)
  Sender: FDA-Public Use
  Company Number: None

PATIENT
  Sex: Female
  Weight: 14.8 kg

DRUGS (5)
  1. CARBOPLATIN [Suspect]
     Dosage: 610 MG
  2. CYCLOPHOSPHAMIDE [Suspect]
     Dosage: 2885 MG
  3. DOXORUBICIN HYDROCHLORIDE [Suspect]
     Dosage: 28 MG
  4. ETOPOSIDE [Suspect]
     Dosage: 480 MG
  5. VINCRISTINE SULFATE [Suspect]
     Dosage: 2.7 MG

REACTIONS (2)
  - CARDIAC FAILURE CONGESTIVE [None]
  - CARDIO-RESPIRATORY ARREST [None]
